FAERS Safety Report 22536152 (Version 2)
Quarter: 2024Q2

REPORT INFORMATION
  Report Type: Spontaneous
  Country: US (occurrence: US)
  Receive Date: 20230608
  Receipt Date: 20240422
  Transmission Date: 20240716
  Serious: No
  Sender: FDA-Public Use
  Company Number: US-GSKCCFUS-Case-01718960_AE-96918

PATIENT
  Age: 15 Year
  Sex: Male

DRUGS (5)
  1. BENLYSTA [Suspect]
     Active Substance: BELIMUMAB
     Indication: Undifferentiated connective tissue disease
     Dosage: 200 MG, WE
     Route: 058
  2. BENLYSTA [Suspect]
     Active Substance: BELIMUMAB
     Indication: Autoinflammatory disease
  3. BENLYSTA [Suspect]
     Active Substance: BELIMUMAB
     Indication: Connective tissue disorder
     Dosage: 200 MG, WE
  4. OLUMIANT [Suspect]
     Active Substance: BARICITINIB
     Indication: Autoinflammatory disease
     Dosage: UNK
  5. OLUMIANT [Suspect]
     Active Substance: BARICITINIB
     Indication: Undifferentiated connective tissue disease

REACTIONS (4)
  - Urticaria [Recovered/Resolved]
  - Pain in extremity [Recovered/Resolved]
  - Product use in unapproved indication [Unknown]
  - Drug ineffective [Unknown]

NARRATIVE: CASE EVENT DATE: 20230401
